FAERS Safety Report 5199767-7 (Version None)
Quarter: 2007Q1

REPORT INFORMATION
  Report Type: 
  Country: None (occurrence: None)
  Receive Date: 20070105
  Receipt Date: 20060522
  Transmission Date: 20070707
  Serious: No
  Sender: FDA-Public Use
  Company Number: US-GLAXOSMITHKLINE-A0606319A

PATIENT
  Age: 47 Year
  Sex: Female

DRUGS (1)
  1. TAGAMET HB 200 [Suspect]

REACTIONS (4)
  - ERYTHEMA [None]
  - HEAT RASH [None]
  - LOCAL SWELLING [None]
  - URTICARIA [None]
